FAERS Safety Report 5166697-6 (Version None)
Quarter: 2006Q4

REPORT INFORMATION
  Report Type: 
  Country: None (occurrence: None)
  Receive Date: 20061201
  Receipt Date: 20061201
  Transmission Date: 20070319
  Serious: Yes (Other)
  Sender: FDA-Public Use
  Company Number: None

PATIENT
  Sex: Female
  Weight: 87 kg

DRUGS (8)
  1. QUETIAPINE FUMARATE [Suspect]
     Dosage: 500MG  BID PO
     Route: 048
     Dates: start: 20060824, end: 20061117
  2. QUETIAPINE FUMARATE [Suspect]
     Dosage: 500MG  BID PO
     Route: 048
     Dates: start: 20050707
  3. DIVALPROEX [Concomitant]
  4. PANTOPRAZOLE SODIUM [Concomitant]
  5. CALCIUM CARBONATE [Concomitant]
  6. MULTIVITAMIN W/ MINERALS [Concomitant]
  7. DOCUSATE [Concomitant]
  8. MILK OF MAGNESIA [Concomitant]

REACTIONS (1)
  - RETINITIS PIGMENTOSA [None]
